FAERS Safety Report 18231049 (Version 1)
Quarter: 2020Q3

REPORT INFORMATION
  Report Type: Other
  Country: JP (occurrence: JP)
  Receive Date: 20200904
  Receipt Date: 20200904
  Transmission Date: 20201103
  Serious: Yes (Other)
  Sender: FDA-Public Use
  Company Number: JP-ROCHE-2670906

PATIENT

DRUGS (3)
  1. TIPIRACIL [Suspect]
     Active Substance: TIPIRACIL
     Indication: COLORECTAL CANCER METASTATIC
     Dosage: 8?12 IN A 28?DAY CYCLE
     Route: 065
  2. TRIFLURIDINE. [Suspect]
     Active Substance: TRIFLURIDINE
     Indication: COLORECTAL CANCER METASTATIC
     Dosage: 35 MG/M2 TWICE DAILY ON DAYS 1?5
     Route: 065
  3. BEVACIZUMAB. [Suspect]
     Active Substance: BEVACIZUMAB
     Indication: COLORECTAL CANCER METASTATIC
     Dosage: 5 MG/KG, ON DAYS 1 AND 15
     Route: 065

REACTIONS (10)
  - Intestinal perforation [Unknown]
  - Diarrhoea [Unknown]
  - Proteinuria [Unknown]
  - Decreased appetite [Unknown]
  - Nausea [Unknown]
  - Thrombocytopenia [Unknown]
  - Blood bilirubin increased [Unknown]
  - Fatigue [Unknown]
  - Neutropenia [Unknown]
  - Febrile neutropenia [Unknown]
